FAERS Safety Report 25218471 (Version 1)
Quarter: 2025Q2

REPORT INFORMATION
  Report Type: Report from Study
  Country: US (occurrence: US)
  Receive Date: 20250421
  Receipt Date: 20250421
  Transmission Date: 20250717
  Serious: Yes (Other)
  Sender: ROCHE
  Company Number: US-ROCHE-10000145313

PATIENT
  Age: 71 Year

DRUGS (1)
  1. ACTEMRA [Suspect]
     Active Substance: TOCILIZUMAB
     Indication: Product used for unknown indication
     Route: 058

REACTIONS (3)
  - Blindness [Unknown]
  - Tremor [Unknown]
  - Glaucoma [Unknown]
